FAERS Safety Report 8076637-8 (Version None)
Quarter: 2012Q1

REPORT INFORMATION
  Report Type: 
  Country: None (occurrence: None)
  Receive Date: 20120127
  Receipt Date: 20120126
  Transmission Date: 20120608
  Serious: Yes (Death, Hospitalization)
  Sender: FDA-Public Use
  Company Number: PHHY2011US30162

PATIENT
  Age: 55 Year
  Sex: Male

DRUGS (3)
  1. METHADONE HCL [Suspect]
     Indication: PAIN
     Dosage: 120 MG, DAILY
     Dates: start: 20070518
  2. LEVITRA [Concomitant]
     Dosage: UNK UKN, UNK
     Dates: start: 20060724
  3. AMITRIPTYLINE HCL [Concomitant]
     Dosage: UNK UKN, UNK
     Dates: start: 20050124

REACTIONS (3)
  - SEPTIC SHOCK [None]
  - DEATH [None]
  - ELECTROCARDIOGRAM QT PROLONGED [None]
